FAERS Safety Report 8607127 (Version 2)
Quarter: 2013Q3

REPORT INFORMATION
  Report Type: Spontaneous
  Country: US (occurrence: US)
  Receive Date: 20120611
  Receipt Date: 20130725
  Transmission Date: 20140515
  Serious: Yes (Other)
  Sender: FDA-Public Use
  Company Number: US-ASTRAZENECA-2012SE35968

PATIENT
  Age: 420 Month
  Sex: Female

DRUGS (27)
  1. NEXIUM [Suspect]
     Indication: GASTROINTESTINAL DISORDER
     Route: 048
     Dates: start: 20090927
  2. NEXIUM [Suspect]
     Indication: GASTROOESOPHAGEAL REFLUX DISEASE
     Route: 048
     Dates: start: 20090927
  3. NEXIUM [Suspect]
     Indication: GASTROOESOPHAGEAL REFLUX DISEASE
     Route: 048
     Dates: start: 20090927
  4. PREVACID [Concomitant]
     Indication: GASTROOESOPHAGEAL REFLUX DISEASE
     Dates: start: 20060905
  5. ACIPHEX [Concomitant]
     Dates: start: 20070905
  6. AXID [Concomitant]
     Dates: start: 19971212, end: 19980728
  7. MILK OF MAGNESIA [Concomitant]
     Dates: start: 1998, end: 1999
  8. ROLAIDS [Concomitant]
  9. SYNTHROID/CYTOMEL [Concomitant]
     Indication: THYROID DISORDER
  10. PREMARIN [Concomitant]
     Indication: MENOPAUSE
     Dates: start: 2003, end: 2005
  11. CYMBALTA [Concomitant]
     Indication: MENTAL DISORDER
  12. ADDERALL [Concomitant]
     Indication: ILL-DEFINED DISORDER
  13. CHANTIX [Concomitant]
  14. HYDROCO/APAP/LORTAB [Concomitant]
     Indication: PAIN
     Dosage: 5 TO 500 M, 7.5 TO 50, 10 TO 1.50 OVERTIME
  15. CITALOPRAM [Concomitant]
     Dosage: 40 MG OR 20 MG
  16. SINGULAIR [Concomitant]
     Indication: MULTIPLE ALLERGIES
  17. TRAZADONE [Concomitant]
     Indication: MENTAL DISORDER
  18. ZYRTEC [Concomitant]
     Indication: MULTIPLE ALLERGIES
  19. VAGIFEM [Concomitant]
     Indication: MENOPAUSE
  20. SEROQUEL [Concomitant]
     Indication: MENTAL DISORDER
  21. EFFEXOR [Concomitant]
     Indication: MENTAL DISORDER
  22. XANAX [Concomitant]
     Indication: ANXIETY
  23. LAMICTAL [Concomitant]
  24. ZOLPIDEM [Concomitant]
  25. TIZANIDINE [Concomitant]
  26. VITAMIN B 12 [Concomitant]
  27. FISH OIL [Concomitant]

REACTIONS (10)
  - Pelvic fracture [Unknown]
  - Sacroiliitis [Unknown]
  - Osteoporosis [Unknown]
  - Multiple fractures [Unknown]
  - Fractured coccyx [Unknown]
  - Psoriatic arthropathy [Unknown]
  - Pain [Unknown]
  - Fall [Unknown]
  - Osteoarthritis [Unknown]
  - Fibromyalgia [Unknown]
